FAERS Safety Report 12728601 (Version 3)
Quarter: 2016Q4

REPORT INFORMATION
  Report Type: Spontaneous
  Country: GR (occurrence: GR)
  Receive Date: 20160909
  Receipt Date: 20161012
  Transmission Date: 20170207
  Serious: Yes (Hospitalization)
  Sender: FDA-Public Use
  Company Number: PHHY2016GR124475

PATIENT
  Age: 61 Year
  Sex: Male
  Weight: 96 kg

DRUGS (2)
  1. CISPLATIN. [Concomitant]
     Active Substance: CISPLATIN
     Indication: PRODUCT USED FOR UNKNOWN INDICATION
     Route: 065
  2. XOTERNA BREEZHALER [Suspect]
     Active Substance: GLYCOPYRRONIUM\INDACATEROL
     Dosage: UNK
     Route: 055
     Dates: start: 20150805, end: 20160128

REACTIONS (1)
  - Laryngeal stenosis [Recovered/Resolved]

NARRATIVE: CASE EVENT DATE: 201601
